FAERS Safety Report 7418378-3 (Version None)
Quarter: 2011Q2

REPORT INFORMATION
  Report Type: 
  Country: None (occurrence: None)
  Receive Date: 20110415
  Receipt Date: 20110407
  Transmission Date: 20111010
  Serious: Yes (Life-Threatening)
  Sender: FDA-Public Use
  Company Number: B0713074A

PATIENT
  Sex: Male

DRUGS (6)
  1. DUPHALAC [Concomitant]
     Dosage: 15ML PER DAY
     Route: 048
  2. VENTOLIN [Suspect]
     Dosage: 5MG FOUR TIMES PER DAY
     Route: 055
     Dates: start: 20110321, end: 20110325
  3. IPRATROPIUM BROMIDE [Suspect]
     Dosage: .25MG FOUR TIMES PER DAY
     Route: 055
     Dates: start: 20110321, end: 20110325
  4. PARACET [Concomitant]
     Indication: PAIN
     Route: 048
  5. ALBYL-E [Concomitant]
     Dosage: 160MG PER DAY
     Route: 048
     Dates: start: 20110201
  6. PERSANTIN [Concomitant]
     Dosage: 200MG TWICE PER DAY
     Route: 048
     Dates: start: 20110201

REACTIONS (3)
  - HYPOXIA [None]
  - CYANOSIS [None]
  - DYSPNOEA [None]
